FAERS Safety Report 26074734 (Version 2)
Quarter: 2025Q4

REPORT INFORMATION
  Report Type: Report from Study
  Country: US (occurrence: US)
  Receive Date: 20251121
  Receipt Date: 20251203
  Transmission Date: 20260118
  Serious: No
  Sender: ALEXION PHARMACEUTICALS
  Company Number: 202412USA022564US

PATIENT
  Age: 69 Year
  Sex: Female

DRUGS (2)
  1. STRENSIQ [Suspect]
     Active Substance: ASFOTASE ALFA
     Indication: Phosphorus metabolism disorder
     Dosage: 1 MILLIGRAM/KILOGRAM, Q3W
     Route: 065
  2. STRENSIQ [Suspect]
     Active Substance: ASFOTASE ALFA
     Dosage: 1 MILLIGRAM/KILOGRAM, Q3W
     Route: 065

REACTIONS (4)
  - Injection site pain [Unknown]
  - Injection site discolouration [Unknown]
  - Fatigue [Unknown]
  - Pain in extremity [Unknown]
